FAERS Safety Report 4927123-2 (Version None)
Quarter: 2006Q1

REPORT INFORMATION
  Report Type: 
  Country: None (occurrence: None)
  Receive Date: 20060222
  Receipt Date: 20060208
  Transmission Date: 20060701
  Serious: Yes (Hospitalization)
  Sender: FDA-Public Use
  Company Number: 2006PV008392

PATIENT
  Age: 65 Year
  Sex: Male
  Weight: 148.7798 kg

DRUGS (13)
  1. BYETTA [Suspect]
     Indication: DIABETES MELLITUS NON-INSULIN-DEPENDENT
     Dosage: 10 MCG BID SC ; 5 MCG BID SC
     Route: 058
     Dates: start: 20051115, end: 20051201
  2. BYETTA [Suspect]
     Indication: DIABETES MELLITUS NON-INSULIN-DEPENDENT
     Dosage: 10 MCG BID SC ; 5 MCG BID SC
     Route: 058
     Dates: start: 20051201, end: 20060101
  3. GLYBURIDE [Concomitant]
  4. AVANDIA [Concomitant]
  5. DUONEB [Concomitant]
  6. PRINIVIL [Concomitant]
  7. LIPITOR [Concomitant]
  8. PLAVIX [Concomitant]
  9. LASIX [Concomitant]
  10. ASPIRIN [Concomitant]
  11. ADVAIR DISKUS 100/50 [Concomitant]
  12. LANTUS [Concomitant]
  13. PHENERGAN [Concomitant]

REACTIONS (8)
  - AORTIC ANEURYSM [None]
  - BLOOD ALKALINE PHOSPHATASE INCREASED [None]
  - BLOOD CALCIUM INCREASED [None]
  - NAUSEA [None]
  - PANCREATITIS [None]
  - PNEUMONIA [None]
  - SPUTUM ABNORMAL [None]
  - WEIGHT DECREASED [None]
